FAERS Safety Report 13912204 (Version 1)
Quarter: 2017Q3

REPORT INFORMATION
  Report Type: Spontaneous
  Country: US (occurrence: US)
  Receive Date: 20170828
  Receipt Date: 20170828
  Transmission Date: 20171127
  Serious: No
  Sender: FDA-Public Use
  Company Number: US-ROCHE-1142448

PATIENT
  Sex: Male
  Weight: 66.5 kg

DRUGS (5)
  1. SERZONE [Concomitant]
     Active Substance: NEFAZODONE HYDROCHLORIDE
     Route: 065
  2. NUTROPIN AQ [Suspect]
     Active Substance: SOMATROPIN
     Indication: DWARFISM
     Route: 065
     Dates: start: 19990419
  3. RITALIN [Concomitant]
     Active Substance: METHYLPHENIDATE HYDROCHLORIDE
     Route: 065
  4. RANITIDINE. [Concomitant]
     Active Substance: RANITIDINE
  5. WELLBUTRIN [Concomitant]
     Active Substance: BUPROPION HYDROCHLORIDE

REACTIONS (2)
  - Nausea [Unknown]
  - Diarrhoea [Unknown]
